FAERS Safety Report 8435375-X (Version None)
Quarter: 2012Q2

REPORT INFORMATION
  Report Type: 
  Country: None (occurrence: None)
  Receive Date: 20120614
  Receipt Date: 20120606
  Transmission Date: 20120825
  Serious: Yes (Hospitalization, Other)
  Sender: FDA-Public Use
  Company Number: PHHO2011IT018512

PATIENT
  Sex: Male
  Weight: 135 kg

DRUGS (15)
  1. BLINDED NO TREATMENT RECEIVED [Suspect]
     Indication: CORONARY ARTERY DISEASE
     Dosage: CODE NOT BROKEN
     Route: 048
     Dates: start: 20100318, end: 20111027
  2. CARDURA [Concomitant]
     Dosage: 4 MG, UNK
     Dates: start: 20100414
  3. METOPROLOL TARTRATE [Concomitant]
     Dosage: 25 MG, UNK
     Dates: start: 20110427
  4. IRBESARTAN AND HYDROCHLOROTHIAZIDE [Concomitant]
     Dosage: 325 MG, QD
     Dates: start: 20100101, end: 20111027
  5. TORSEMIDE [Concomitant]
     Dosage: 10 MG, UNK
     Dates: start: 20100101, end: 20111027
  6. SPIRONOLACTONE [Concomitant]
     Indication: HYPERTENSION
     Dosage: 25 MG, UNK
     Dates: start: 20110427
  7. ALISKIREN [Suspect]
     Indication: CORONARY ARTERY DISEASE
     Dosage: 150 MG, UNK
     Route: 048
     Dates: start: 20100311, end: 20100317
  8. IRBESARTAN AND HYDROCHLOROTHIAZIDE [Concomitant]
     Indication: HYPERTENSION
     Dosage: 300/25
     Dates: start: 20091117
  9. ALLOPURINOL [Concomitant]
     Indication: HYPERURICAEMIA
     Dosage: 300 MG, UNK
     Dates: start: 20110527
  10. ALLOPURINOL [Concomitant]
     Dosage: 300 MG, UNK
     Dates: start: 20110729, end: 20111027
  11. RANEXA [Concomitant]
     Indication: CORONARY ARTERY DISEASE
     Dosage: 500 MG, QD
     Dates: start: 20110427, end: 20111027
  12. BLINDED ALISKIREN [Suspect]
     Indication: CORONARY ARTERY DISEASE
     Dosage: CODE NOT BROKEN
     Route: 048
     Dates: start: 20100318, end: 20111027
  13. PLACEBO [Suspect]
     Indication: CORONARY ARTERY DISEASE
     Dosage: CODE NOT BROKEN
     Route: 048
     Dates: start: 20100318, end: 20111027
  14. TORSEMIDE [Concomitant]
     Indication: HYPERTENSION
     Dosage: 10 MG, UNK
     Dates: start: 20091117
  15. SPIRONOLACTONE [Concomitant]
     Dosage: 25 MG, UNK
     Dates: start: 20110727, end: 20111027

REACTIONS (2)
  - RENAL FAILURE ACUTE [None]
  - DIARRHOEA [None]
